FAERS Safety Report 21691495 (Version 1)
Quarter: 2022Q4

REPORT INFORMATION
  Report Type: Spontaneous
  Country: US (occurrence: US)
  Receive Date: 20221207
  Receipt Date: 20221207
  Transmission Date: 20230113
  Serious: No
  Sender: FDA-Public Use
  Company Number: US-SA-SAC20221202000600

PATIENT
  Sex: Female

DRUGS (1)
  1. DUPIXENT [Suspect]
     Active Substance: DUPILUMAB
     Dosage: 200 MG QOW START DATE : APR,2022
     Route: 058
     Dates: start: 202204

REACTIONS (6)
  - Stomatitis [Unknown]
  - Gastritis [Unknown]
  - Abdominal discomfort [Unknown]
  - Condition aggravated [Unknown]
  - Diverticulum intestinal [Unknown]
  - Oral herpes [Unknown]
